FAERS Safety Report 5677621-1 (Version None)
Quarter: 2008Q1

REPORT INFORMATION
  Report Type: 
  Country: None (occurrence: None)
  Receive Date: 20080318
  Receipt Date: 20080305
  Transmission Date: 20080703
  Serious: Yes (Hospitalization)
  Sender: FDA-Public Use
  Company Number: GXKR2008GB02342

PATIENT
  Age: 69 Year
  Sex: Female

DRUGS (11)
  1. ACETAMINOPHEN [Suspect]
     Indication: PAIN MANAGEMENT
  2. FLUCLOXACILLIN (NGX)(FLUCLOXACILLIN) UNKNOWN [Suspect]
     Indication: CONNECTIVE TISSUE INFLAMMATION
     Dosage: INTRAVENOUS
     Route: 042
  3. GLICLAZIDE (GLICLAZIDE) [Concomitant]
  4. CALCIUM CHANNEL BLOCKERS (NO INGREDIENTS/SUBSTANCES) [Concomitant]
  5. NITRATES (NITRATES) [Concomitant]
  6. TRAMADOL HCL [Concomitant]
  7. CODEINE SUL TAB [Concomitant]
  8. GENTAMICIN [Concomitant]
  9. OPIOIDS (NO INGREDIENTS/SUBSTANCES) [Concomitant]
  10. METRONIDAZOLE [Concomitant]
  11. CEFTRIAXONE [Concomitant]

REACTIONS (14)
  - ACUTE RESPIRATORY DISTRESS SYNDROME [None]
  - ALCOHOL USE [None]
  - DEPRESSED LEVEL OF CONSCIOUSNESS [None]
  - ENCEPHALOPATHY [None]
  - GLUTATHIONE DECREASED [None]
  - HYPERTENSION [None]
  - INADEQUATE DIET [None]
  - METABOLIC ACIDOSIS [None]
  - MULTI-ORGAN FAILURE [None]
  - RENAL FAILURE ACUTE [None]
  - RENAL INJURY [None]
  - SEPSIS [None]
  - SEPTIC SHOCK [None]
  - TACHYCARDIA [None]
